FAERS Safety Report 13122814 (Version 2)
Quarter: 2017Q2

REPORT INFORMATION
  Report Type: Spontaneous
  Country: DE (occurrence: DE)
  Receive Date: 20170117
  Receipt Date: 20170515
  Transmission Date: 20170830
  Serious: Yes (Other)
  Sender: FDA-Public Use
  Company Number: DE-TEVA-727326GER

PATIENT
  Age: 3 Year
  Sex: Male
  Weight: 17.7 kg

DRUGS (3)
  1. SALBUBRONCH ELIXIER [Concomitant]
     Active Substance: ALBUTEROL SULFATE
     Indication: BRONCHITIS
     Dosage: 75 GTT DAILY;
     Route: 048
     Dates: start: 20161111
  2. SALBUTAMOL-RATIOPHARM INHALATIONSLOESUNG [Concomitant]
     Indication: BRONCHITIS
     Dosage: 12 GTT DAILY;
     Route: 055
     Dates: start: 20160919
  3. SALBUTAMOL-RATIOPHARM INHALATIONSLOESUNG [Suspect]
     Active Substance: ALBUTEROL
     Indication: BRONCHITIS
     Dosage: 75 GTT DAILY; TOTAL
     Route: 048
     Dates: start: 20161110, end: 20161211

REACTIONS (4)
  - Hyperhidrosis [Recovered/Resolved]
  - Product name confusion [Recovered/Resolved]
  - Abnormal behaviour [Recovered/Resolved]
  - Product packaging confusion [Recovered/Resolved]

NARRATIVE: CASE EVENT DATE: 20161210
